FAERS Safety Report 8458681-1 (Version None)
Quarter: 2012Q2

REPORT INFORMATION
  Report Type: 
  Country: None (occurrence: None)
  Receive Date: 20120615
  Receipt Date: 20120604
  Transmission Date: 20120825
  Serious: Yes (Hospitalization, Disabling, Other)
  Sender: FDA-Public Use
  Company Number: 2011MA002721

PATIENT
  Sex: Male
  Weight: 108.8633 kg

DRUGS (89)
  1. ASPIRIN [Concomitant]
  2. ATAPAX [Concomitant]
  3. CELEBREX [Concomitant]
  4. FLOVENT [Concomitant]
  5. GABAPENTIN [Concomitant]
  6. HYDROCODONE BITARTRATE AND ACETAMINOPHEN [Concomitant]
  7. METHYLPREDNISOLONE ACETATE [Concomitant]
  8. METOPROLOL TARTRATE [Concomitant]
  9. NIZORAL [Concomitant]
  10. PROPOXYPHENE NAPSYLATE [Concomitant]
  11. ZESTRIL [Concomitant]
  12. ZYRTEC [Concomitant]
  13. RENAGEL [Concomitant]
  14. ALBUTEROL [Concomitant]
  15. BLEPH 10-OPHTHALMIC [Concomitant]
  16. CEFUROXIME [Concomitant]
  17. ERYTHROMYCIN [Concomitant]
  18. ESOMEPRAZOLE [Concomitant]
  19. FLONASE [Concomitant]
  20. LAC-HYDRIN [Concomitant]
  21. ALPRAZOLAM [Concomitant]
  22. BACITRACIN ZINC OINTMENT [Concomitant]
  23. CLOTRIMAZOLE [Concomitant]
  24. COGENTIN [Concomitant]
  25. COLCHICINE [Concomitant]
  26. DARVOCET [Concomitant]
  27. PERI-COLACE [Concomitant]
  28. PRINIVIL [Concomitant]
  29. SEPTRA [Concomitant]
  30. STEROID INJECTION [Concomitant]
  31. CALCIUM CARBONATE [Concomitant]
  32. CALCITRIOL [Concomitant]
  33. CALCIUM CARBONATE [Concomitant]
  34. EPOGEN [Concomitant]
  35. PENICILLIN VK [Concomitant]
  36. PROATINE [Concomitant]
  37. TRELSTAR [Concomitant]
  38. XERAC-AC [Concomitant]
  39. ACIPHEX [Concomitant]
  40. AMLOIDPINE [Concomitant]
  41. CALCIUM ACETATE [Concomitant]
  42. CEPHALEXIN [Concomitant]
  43. HYDROXYZINE [Concomitant]
  44. MINOXIDIL [Concomitant]
  45. NASACORT [Concomitant]
  46. NEPHROCAPS [Concomitant]
  47. RENAPHRO [Concomitant]
  48. SENNA-S [Concomitant]
  49. TOBRDEX [Concomitant]
  50. VIAGRA [Concomitant]
  51. ALLEGRA [Concomitant]
  52. AUGMENTIN '125' [Concomitant]
  53. CIALIS [Concomitant]
  54. CLARITHROMYCIN [Concomitant]
  55. CLOPIDOGREL [Concomitant]
  56. COZAAR [Concomitant]
  57. ELAVIL [Concomitant]
  58. HYDROCODONE/HOMATROPIONE [Concomitant]
  59. LEVAQUIN [Concomitant]
  60. LIPITOR [Concomitant]
  61. OMEPRAZOLE [Concomitant]
  62. ROCALTROL [Concomitant]
  63. SERTRALINE HYDROCHLORIDE [Concomitant]
  64. ZITHROMAX [Concomitant]
  65. ACETAMINOPHEN [Concomitant]
  66. ALLOPURINOL [Concomitant]
  67. AMOXICILLIN [Concomitant]
  68. CEFACLOR [Concomitant]
  69. CIPROFLOXACIN [Concomitant]
  70. CLARITIN [Concomitant]
  71. ENULOSE [Concomitant]
  72. HEMORRHOIDAL [Concomitant]
  73. HUMIBID LA [Concomitant]
  74. IBUPROFEN [Concomitant]
  75. LOPRESSOR [Concomitant]
  76. LYRICA [Concomitant]
  77. MEDROL [Concomitant]
  78. QUINTEX HC [Concomitant]
  79. RENAL SOFTGEL [Concomitant]
  80. METOCLOPRAMIDE [Suspect]
     Indication: GASTROOESOPHAGEAL REFLUX DISEASE
     Dosage: 5 MG; AC + HS PRN;PO
     Route: 048
     Dates: start: 20000321, end: 20090617
  81. CODEINE [Concomitant]
  82. BENZONATATE [Concomitant]
  83. CLINDAMYCIN [Concomitant]
  84. DARVOCET-N 50 [Concomitant]
  85. DOC-Q-LAX [Concomitant]
  86. MUPIROICN [Concomitant]
  87. NEURONTIN [Concomitant]
  88. NEXIUM [Concomitant]
  89. SORBITOL 50PC INJ [Concomitant]

REACTIONS (62)
  - FAMILY STRESS [None]
  - EMOTIONAL DISTRESS [None]
  - ANXIETY [None]
  - PERIPHERAL SENSORY NEUROPATHY [None]
  - PNEUMONIA ASPIRATION [None]
  - GASTRIC ULCER [None]
  - ACTIVITIES OF DAILY LIVING IMPAIRED [None]
  - MYOCARDIAL ISCHAEMIA [None]
  - CARPAL TUNNEL SYNDROME [None]
  - DYSLIPIDAEMIA [None]
  - DRUG INTOLERANCE [None]
  - RECTAL FISSURE [None]
  - DRY MOUTH [None]
  - ASTHENIA [None]
  - DYSKINESIA [None]
  - IMMUNE TOLERANCE INDUCTION [None]
  - HAEMATURIA [None]
  - RENAL CYST [None]
  - NEPHROCALCINOSIS [None]
  - GASTRITIS EROSIVE [None]
  - CARCINOID TUMOUR [None]
  - HYPERPARATHYROIDISM [None]
  - PROSTATE CANCER [None]
  - INJURY [None]
  - TREMOR [None]
  - ASCITES [None]
  - ARTERIOSCLEROSIS CORONARY ARTERY [None]
  - HYPOAESTHESIA [None]
  - GOUT [None]
  - BALANCE DISORDER [None]
  - OVERWEIGHT [None]
  - RETCHING [None]
  - ECONOMIC PROBLEM [None]
  - GLOMERULONEPHRITIS [None]
  - CORONARY ARTERIAL STENT INSERTION [None]
  - THYROXINE FREE DECREASED [None]
  - OSTEONECROSIS [None]
  - HYPERTENSION [None]
  - JOINT SWELLING [None]
  - JOINT EFFUSION [None]
  - EMOTIONAL DISORDER [None]
  - GASTROOESOPHAGEAL REFLUX DISEASE [None]
  - VITAMIN B12 INCREASED [None]
  - HELICOBACTER INFECTION [None]
  - AZOTAEMIA [None]
  - HERNIA [None]
  - HEPATIC CALCIFICATION [None]
  - NEUROPATHY PERIPHERAL [None]
  - HIATUS HERNIA [None]
  - PERITONITIS SCLEROSING [None]
  - BLOOD ACID PHOSPHATASE INCREASED [None]
  - GROIN PAIN [None]
  - TARDIVE DYSKINESIA [None]
  - RENAL FAILURE CHRONIC [None]
  - CORONARY ARTERY STENOSIS [None]
  - HYPOREFLEXIA [None]
  - UPPER GASTROINTESTINAL HAEMORRHAGE [None]
  - CYSTITIS [None]
  - SLEEP APNOEA SYNDROME [None]
  - RENAL CYST HAEMORRHAGE [None]
  - NO THERAPEUTIC RESPONSE [None]
  - CHEST DISCOMFORT [None]
